FAERS Safety Report 23118232 (Version 3)
Quarter: 2023Q4

REPORT INFORMATION
  Report Type: Report from Study
  Country: US (occurrence: US)
  Receive Date: 20231027
  Receipt Date: 20231106
  Transmission Date: 20240110
  Serious: Yes (Hospitalization, Other)
  Sender: FDA-Public Use
  Company Number: US-ABBVIE-5468801

PATIENT
  Age: 30 Year
  Sex: Female

DRUGS (1)
  1. HUMIRA [Suspect]
     Active Substance: ADALIMUMAB
     Indication: Colitis ulcerative
     Dosage: FORM STRENGTH: 40 MILLIGRAM?CITRATE FREE
     Route: 058
     Dates: start: 202207

REACTIONS (7)
  - Vaginal haemorrhage [Recovered/Resolved]
  - Maternal exposure during pregnancy [Unknown]
  - Vaginal haemorrhage [Recovered/Resolved]
  - Complication of pregnancy [Unknown]
  - Placenta praevia [Not Recovered/Not Resolved]
  - Live birth [Unknown]
  - Caesarean section [Unknown]

NARRATIVE: CASE EVENT DATE: 20230726
